FAERS Safety Report 13718206 (Version 1)
Quarter: 2017Q3

REPORT INFORMATION
  Report Type: Spontaneous
  Country: BR (occurrence: BR)
  Receive Date: 20170705
  Receipt Date: 20170705
  Transmission Date: 20171127
  Serious: Yes (Other)
  Sender: FDA-Public Use
  Company Number: BR-SA-2017SA117446

PATIENT
  Sex: Female

DRUGS (2)
  1. STILNOX [Suspect]
     Active Substance: ZOLPIDEM TARTRATE
     Indication: SLEEP DISORDER
     Route: 048
  2. XALATAN [Suspect]
     Active Substance: LATANOPROST
     Indication: INTRAOCULAR PRESSURE TEST ABNORMAL
     Route: 065

REACTIONS (8)
  - Cataract [Unknown]
  - Thrombosis [Unknown]
  - Conjunctivitis [Recovered/Resolved]
  - Intraocular pressure increased [Not Recovered/Not Resolved]
  - Drug ineffective [Unknown]
  - Fat tissue increased [Unknown]
  - Cataract operation [Unknown]
  - Limb asymmetry [Unknown]

NARRATIVE: CASE EVENT DATE: 2016
